FAERS Safety Report 22854970 (Version 2)
Quarter: 2024Q4

REPORT INFORMATION
  Report Type: Spontaneous
  Country: CA (occurrence: CA)
  Receive Date: 20230823
  Receipt Date: 20241011
  Transmission Date: 20250115
  Serious: Yes (Other)
  Sender: PFIZER
  Company Number: CA-PFIZER INC-202200996302

PATIENT
  Age: 51 Year
  Sex: Female

DRUGS (3)
  1. ABRILADA [Suspect]
     Active Substance: ADALIMUMAB-AFZB
     Indication: Hidradenitis
     Dosage: 1 DF (WEEK 0 160 MG, WEEK 2 80 MG AND THEN 80 MG, EVERY WEEK)
     Route: 058
     Dates: start: 20220808, end: 202306
  2. ABRILADA [Suspect]
     Active Substance: ADALIMUMAB-AFZB
     Dosage: 40 MG, WEEKLY
     Route: 058
     Dates: start: 202306, end: 202307
  3. ABRILADA [Suspect]
     Active Substance: ADALIMUMAB-AFZB
     Dosage: 80 MG, WEEKLY
     Route: 058
     Dates: start: 202307, end: 2024

REACTIONS (8)
  - Herpes simplex [Unknown]
  - Postoperative wound infection [Unknown]
  - Therapeutic product effect incomplete [Unknown]
  - Gallbladder disorder [Recovered/Resolved]
  - Weight decreased [Unknown]
  - Rash [Unknown]
  - Off label use [Unknown]
  - Off label use [Unknown]

NARRATIVE: CASE EVENT DATE: 20220101
